FAERS Safety Report 19804646 (Version 1)
Quarter: 2021Q3

REPORT INFORMATION
  Report Type: Spontaneous
  Country: IN (occurrence: IN)
  Receive Date: 20210908
  Receipt Date: 20210908
  Transmission Date: 20211014
  Serious: Yes (Other)
  Sender: FDA-Public Use
  Company Number: IN-MYLANLABS-2021M1059721

PATIENT
  Age: 55 Year
  Sex: Female

DRUGS (2)
  1. NORMAL SALINE [Concomitant]
     Active Substance: SODIUM CHLORIDE
     Indication: VEHICLE SOLUTION USE
     Dosage: 2.5 LITER, CISPLATIN 100MG IN 2.5ML SODIUM CHLORIDE PERFUSATE AT 41?43 DEGC FOR 60 MINUTES?
     Route: 033
  2. CISPLATIN. [Suspect]
     Active Substance: CISPLATIN
     Indication: OVARIAN CANCER
     Dosage: 70 MILLIGRAM/SQ. METER, CISPLATIN 100MG IN 2.5ML..
     Route: 033

REACTIONS (3)
  - Coagulation test abnormal [Unknown]
  - Hypotension [Unknown]
  - Nephropathy toxic [Unknown]
